FAERS Safety Report 22141546 (Version 1)
Quarter: 2023Q1

REPORT INFORMATION
  Report Type: Report from Study
  Country: FR (occurrence: FR)
  Receive Date: 20230327
  Receipt Date: 20230327
  Transmission Date: 20230418
  Serious: Yes (Hospitalization)
  Sender: FDA-Public Use
  Company Number: FR-PFIZER INC-PV202300050117

PATIENT
  Sex: Female
  Weight: 85 kg

DRUGS (1)
  1. LORLATINIB [Suspect]
     Active Substance: LORLATINIB
     Dosage: 50 MG
     Route: 048

REACTIONS (1)
  - Prosthesis implantation [Recovered/Resolved]

NARRATIVE: CASE EVENT DATE: 20220201
